FAERS Safety Report 20931960 (Version 1)
Quarter: 2022Q2

REPORT INFORMATION
  Report Type: Spontaneous
  Country: US (occurrence: None)
  Receive Date: 20220607
  Receipt Date: 20220607
  Transmission Date: 20220720
  Serious: Yes (Hospitalization)
  Sender: FDA-Public Use
  Company Number: None

PATIENT
  Sex: Female

DRUGS (8)
  1. TOBRAMYCIN [Suspect]
     Active Substance: TOBRAMYCIN
     Dosage: OTHER QUANTITY : 300MG/5ML;?FREQUENCY : AS DIRECTED;?
     Route: 055
     Dates: start: 20220121
  2. CENTURY TAB [Concomitant]
  3. FLONASE ALGY SPR [Concomitant]
  4. FLORASTOR KI PAK [Concomitant]
  5. GAS X EX-STR CHW [Concomitant]
  6. IBUPROFEN [Concomitant]
     Active Substance: IBUPROFEN
  7. MIRALAX [Concomitant]
     Active Substance: POLYETHYLENE GLYCOL 3350
  8. TYLENOL [Concomitant]
     Active Substance: ACETAMINOPHEN

REACTIONS (1)
  - Hospitalisation [None]
